FAERS Safety Report 6825843-6 (Version None)
Quarter: 2010Q3

REPORT INFORMATION
  Report Type: 
  Country: None (occurrence: None)
  Receive Date: 20100709
  Receipt Date: 20100625
  Transmission Date: 20110219
  Serious: Yes (Disabling)
  Sender: FDA-Public Use
  Company Number: GB-RANBAXY-2010RR-35478

PATIENT
  Age: 31 Year

DRUGS (2)
  1. CIPROFLOXACIN [Suspect]
     Indication: INFECTION
     Dosage: 250 MG, BID
     Route: 048
  2. OLANZAPINE [Concomitant]
     Indication: MANIA
     Dosage: 5 MG, UNK
     Route: 048
     Dates: start: 20050101

REACTIONS (1)
  - PSYCHOTIC DISORDER [None]
